FAERS Safety Report 8465066-0 (Version None)
Quarter: 2012Q2

REPORT INFORMATION
  Report Type: 
  Country: None (occurrence: None)
  Receive Date: 20120626
  Receipt Date: 20120618
  Transmission Date: 20120825
  Serious: Yes (Hospitalization)
  Sender: FDA-Public Use
  Company Number: US-BAYER-2012-018895

PATIENT
  Age: 20 Year
  Sex: Female
  Weight: 66 kg

DRUGS (3)
  1. YAZ [Suspect]
     Indication: CONTRACEPTION
     Dosage: UNK
     Dates: start: 20071001, end: 20100501
  2. YAZ [Suspect]
     Indication: DYSMENORRHOEA
  3. AMPHET/DEXTRO [Concomitant]
     Dosage: 5 MG, 1 TABLET 6 TIMES A DAY AS NEEDED
     Route: 048
     Dates: start: 20100219

REACTIONS (2)
  - DEEP VEIN THROMBOSIS [None]
  - MENTAL DISORDER [None]
